FAERS Safety Report 5462464-4 (Version None)
Quarter: 2007Q3

REPORT INFORMATION
  Report Type: 
  Country: None (occurrence: None)
  Receive Date: 20070816
  Receipt Date: 20060804
  Transmission Date: 20080115
  Serious: Yes (Disabling)
  Sender: FDA-Public Use
  Company Number: 458599

PATIENT
  Age: 39 Year
  Sex: Female
  Weight: 72.6 kg

DRUGS (1)
  1. CELLCEPT [Suspect]
     Indication: PROPHYLAXIS AGAINST TRANSPLANT REJECTION
     Dosage: 2 PER DAY ORAL
     Route: 048
     Dates: start: 20050823, end: 20060301

REACTIONS (4)
  - ABDOMINAL PAIN UPPER [None]
  - DIARRHOEA [None]
  - GASTRIC ULCER [None]
  - OESOPHAGEAL CANDIDIASIS [None]
